FAERS Safety Report 9657397 (Version 3)
Quarter: 2019Q1

REPORT INFORMATION
  Report Type: Report from Study
  Country: NL (occurrence: NL)
  Receive Date: 20131030
  Receipt Date: 20190121
  Transmission Date: 20190418
  Serious: Yes (Other)
  Sender: FDA-Public Use
  Company Number: NL-PFIZER INC-2013303024

PATIENT
  Age: 78 Year
  Sex: Female

DRUGS (5)
  1. AMLODIPINE BESILATE [Suspect]
     Active Substance: AMLODIPINE BESYLATE
     Dosage: UNK
  2. ALPRAZOLAM. [Suspect]
     Active Substance: ALPRAZOLAM
     Dosage: UNK
  3. SOTALOL. [Suspect]
     Active Substance: SOTALOL
     Dosage: UNK
  4. CITALOPRAM [Suspect]
     Active Substance: CITALOPRAM HYDROBROMIDE
     Dosage: 20 MG, DAILY
  5. ENALAPRIL [Suspect]
     Active Substance: ENALAPRIL
     Dosage: UNK

REACTIONS (1)
  - Hyponatraemia [Unknown]
